FAERS Safety Report 5898205-6 (Version None)
Quarter: 2008Q3

REPORT INFORMATION
  Report Type: 
  Country: None (occurrence: None)
  Receive Date: 20080925
  Receipt Date: 20080915
  Transmission Date: 20090109
  Serious: Yes (Other)
  Sender: FDA-Public Use
  Company Number: CA-ELI_LILLY_AND_COMPANY-CA200809004132

PATIENT
  Sex: Male

DRUGS (3)
  1. CIALIS [Suspect]
     Indication: ERECTILE DYSFUNCTION
     Dosage: 20 MG, AS NEEDED
     Route: 048
     Dates: start: 20070601
  2. ASPIRIN [Concomitant]
     Dosage: 80 MG, DAILY (1/D)
  3. LIPITOR [Concomitant]
     Dosage: 20 MG, DAILY (1/D)

REACTIONS (2)
  - HYPOACUSIS [None]
  - THROMBOSIS [None]
